FAERS Safety Report 8842305 (Version 1)
Quarter: 2012Q4

REPORT INFORMATION
  Report Type: 
  Country: US (occurrence: US)
  Receive Date: 20121016
  Receipt Date: 20121016
  Transmission Date: 20130627
  Serious: No
  Sender: FDA-Public Use
  Company Number: US-PFIZER INC-2012255087

PATIENT
  Age: 62 Year
  Sex: Female

DRUGS (2)
  1. ATORVASTATIN CALCIUM [Suspect]
     Indication: BLOOD CHOLESTEROL INCREASED
     Dosage: 10 mg, daily
     Dates: start: 201104, end: 201205
  2. SYNTHROID [Concomitant]
     Indication: SUPPLEMENTATION THERAPY
     Dosage: 0.137 mg, daily

REACTIONS (3)
  - Malaise [Recovered/Resolved]
  - Headache [Recovered/Resolved]
  - Nausea [Recovered/Resolved]
